FAERS Safety Report 15554129 (Version 1)
Quarter: 2018Q4

REPORT INFORMATION
  Report Type: Spontaneous
  Country: US (occurrence: US)
  Receive Date: 20181025
  Receipt Date: 20181025
  Transmission Date: 20190205
  Serious: Yes (Death)
  Sender: FDA-Public Use
  Company Number: None

PATIENT
  Age: 85 Year
  Sex: Female

DRUGS (18)
  1. TRIAMCINOLON [Concomitant]
  2. PAROXETINE. [Concomitant]
     Active Substance: PAROXETINE
  3. DILTIAZEM. [Concomitant]
     Active Substance: DILTIAZEM
  4. METOLAZONE. [Concomitant]
     Active Substance: METOLAZONE
  5. DOXYCYC MONO [Concomitant]
     Active Substance: DOXYCYCLINE
  6. FUROSEMIDE. [Concomitant]
     Active Substance: FUROSEMIDE
  7. LOSARTAN/HCT [Concomitant]
     Active Substance: HYDROCHLOROTHIAZIDE\LOSARTAN POTASSIUM
  8. MONTELUKAST [Concomitant]
     Active Substance: MONTELUKAST SODIUM
  9. ADCIRCA [Suspect]
     Active Substance: TADALAFIL
     Indication: PULMONARY ARTERIAL HYPERTENSION
     Route: 048
     Dates: start: 20180108
  10. OPSUMIT [Concomitant]
     Active Substance: MACITENTAN
  11. LEVOTHYROXINE. [Concomitant]
     Active Substance: LEVOTHYROXINE
  12. LORAZEPAM. [Concomitant]
     Active Substance: LORAZEPAM
  13. POTASSIUM CHLORIDE. [Concomitant]
     Active Substance: POTASSIUM CHLORIDE
  14. OSELTAMIVIR [Concomitant]
     Active Substance: OSELTAMIVIR
  15. METOPROL SUC [Concomitant]
  16. PROAIR HFA [Concomitant]
     Active Substance: ALBUTEROL SULFATE
  17. PRAVASTATIN. [Concomitant]
     Active Substance: PRAVASTATIN
  18. METOPROL SUC [Concomitant]

REACTIONS (1)
  - Death [None]

NARRATIVE: CASE EVENT DATE: 20181006
